FAERS Safety Report 11924945 (Version 2)
Quarter: 2016Q1

REPORT INFORMATION
  Report Type: Report from Study
  Country: US (occurrence: US)
  Receive Date: 20160118
  Receipt Date: 20160128
  Transmission Date: 20160526
  Serious: Yes (Hospitalization, Other)
  Sender: FDA-Public Use
  Company Number: US-BAYER-2016-006422

PATIENT
  Age: 79 Year
  Sex: Male

DRUGS (2)
  1. XOFIGO [Suspect]
     Active Substance: RADIUM RA-223 DICHLORIDE
     Indication: METASTASES TO BONE
  2. XOFIGO [Suspect]
     Active Substance: RADIUM RA-223 DICHLORIDE
     Indication: PROSTATE CANCER STAGE IV
     Dosage: 87.10 ?CI, ONCE EVERY 28 DAYS
     Route: 042
     Dates: start: 20151210, end: 20151210

REACTIONS (3)
  - Hormone-refractory prostate cancer [None]
  - Abasia [None]
  - Cardiac disorder [None]

NARRATIVE: CASE EVENT DATE: 20160127
